FAERS Safety Report 5292155-4 (Version None)
Quarter: 2007Q2

REPORT INFORMATION
  Report Type: 
  Country: None (occurrence: None)
  Receive Date: 20070410
  Receipt Date: 20070404
  Transmission Date: 20071010
  Serious: Yes (Hospitalization)
  Sender: FDA-Public Use
  Company Number: FR-GLAXOSMITHKLINE-B0465177A

PATIENT
  Age: 64 Year
  Sex: Female

DRUGS (3)
  1. CLAMOXYL [Suspect]
     Route: 065
     Dates: start: 20070215
  2. LOVENOX [Concomitant]
     Dates: start: 20070215
  3. PREVISCAN [Concomitant]

REACTIONS (8)
  - ALANINE AMINOTRANSFERASE INCREASED [None]
  - ASPARTATE AMINOTRANSFERASE INCREASED [None]
  - BLOOD ALKALINE PHOSPHATASE INCREASED [None]
  - ERYTHEMA [None]
  - GAMMA-GLUTAMYLTRANSFERASE INCREASED [None]
  - LIVER DISORDER [None]
  - PYREXIA [None]
  - RASH MACULO-PAPULAR [None]
